FAERS Safety Report 9965979 (Version 1)
Quarter: 2014Q1

REPORT INFORMATION
  Report Type: Report from Study
  Country: US (occurrence: US)
  Receive Date: 20140305
  Receipt Date: 20140305
  Transmission Date: 20141002
  Serious: No
  Sender: FDA-Public Use
  Company Number: US-ABBVIE-13P-163-1124100-00

PATIENT
  Age: 60 Year
  Sex: Female

DRUGS (9)
  1. HUMIRA [Suspect]
     Indication: RHEUMATOID ARTHRITIS
     Dates: start: 20130514
  2. COREG [Concomitant]
     Indication: HYPERTENSION
  3. PREDNISONE [Concomitant]
     Indication: RHEUMATOID ARTHRITIS
  4. PREMARIN [Concomitant]
     Indication: MENOPAUSE
  5. URSODIOL [Concomitant]
     Indication: GALLBLADDER DISORDER
  6. CHLOR-KON [Concomitant]
     Indication: MINERAL SUPPLEMENTATION
  7. MULTIVITAMIN [Concomitant]
     Indication: VITAMIN SUPPLEMENTATION
  8. FISH OIL [Concomitant]
     Indication: SUPPLEMENTATION THERAPY
     Dosage: DAILY
  9. ALDACTONE [Concomitant]
     Indication: SUPPLEMENTATION THERAPY

REACTIONS (6)
  - Vision blurred [Recovered/Resolved]
  - Dizziness [Unknown]
  - Fatigue [Unknown]
  - Blood glucose fluctuation [Unknown]
  - Blood pressure fluctuation [Unknown]
  - Upper respiratory tract infection [Recovered/Resolved]
